FAERS Safety Report 9796232 (Version 3)
Quarter: 2014Q2

REPORT INFORMATION
  Report Type: Spontaneous
  Country: US (occurrence: US)
  Receive Date: 20140103
  Receipt Date: 20140521
  Transmission Date: 20141212
  Serious: Yes (Hospitalization, Other)
  Sender: FDA-Public Use
  Company Number: US-BAYER-2013-158574

PATIENT
  Age: 35 Year
  Sex: Female

DRUGS (5)
  1. MIRENA [Suspect]
     Indication: CONTRACEPTION
     Dosage: 20 MCG/24HR, CONT
     Route: 015
     Dates: start: 200802, end: 20100930
  2. MIRENA [Suspect]
     Indication: CONTRACEPTION
     Dosage: 20 MCG/24HR, CONT
     Route: 015
     Dates: start: 20100930, end: 201112
  3. IBUPROFEN [Concomitant]
     Dosage: 200 MG, TAKE 2 QID
  4. PRENATAL VITAMINS [Concomitant]
     Dosage: UNK, DAILY
     Route: 048
  5. ZANTAC [Concomitant]
     Dosage: 150 MG, BID
     Route: 048

REACTIONS (8)
  - Uterine perforation [None]
  - Ovarian cyst [Recovered/Resolved]
  - Embedded device [None]
  - Injury [None]
  - Medical device discomfort [None]
  - Medical device pain [None]
  - Depression [None]
  - Anxiety [None]
